FAERS Safety Report 6022632-X (Version None)
Quarter: 2008Q4

REPORT INFORMATION
  Report Type: 
  Country: None (occurrence: None)
  Receive Date: 20081230
  Receipt Date: 20081223
  Transmission Date: 20090506
  Serious: Yes (Other)
  Sender: FDA-Public Use
  Company Number: US-BAYER-200814581BCC

PATIENT
  Age: 71 Year
  Sex: Male
  Weight: 77 kg

DRUGS (5)
  1. ALKA-SELTZER PLUS COLD + SINUS EFFERVESCENT [Suspect]
     Indication: SINUS DISORDER
     Route: 048
     Dates: start: 20010101, end: 20080901
  2. ALKA-SELTZER PLUS COLD + SINUS EFFERVESCENT [Suspect]
     Route: 048
     Dates: start: 20080101
  3. ALKA-SELTZER PLUS NIGHT-TIME COLD [Suspect]
     Indication: SINUS DISORDER
     Route: 048
     Dates: start: 20010101, end: 20080901
  4. ZETIA [Concomitant]
  5. TRICOR [Concomitant]

REACTIONS (2)
  - ABDOMINAL PAIN UPPER [None]
  - GASTRIC ULCER [None]
